FAERS Safety Report 8056806-3 (Version None)
Quarter: 2012Q1

REPORT INFORMATION
  Report Type: 
  Country: None (occurrence: None)
  Receive Date: 20120119
  Receipt Date: 20120116
  Transmission Date: 20120608
  Serious: Yes (Life-Threatening, Hospitalization)
  Sender: FDA-Public Use
  Company Number: BE-GLAXOSMITHKLINE-B0750287A

PATIENT
  Sex: Female
  Weight: 74 kg

DRUGS (1)
  1. CEFUROXIME [Suspect]
     Indication: BRONCHITIS
     Route: 048
     Dates: start: 20110814, end: 20110814

REACTIONS (8)
  - ANAPHYLACTIC SHOCK [None]
  - CARDIAC ARREST [None]
  - RASH [None]
  - ANGIOEDEMA [None]
  - HYPOTENSION [None]
  - URTICARIA [None]
  - CIRCULATORY COLLAPSE [None]
  - DERMATITIS [None]
